FAERS Safety Report 5751429-0 (Version None)
Quarter: 2008Q2

REPORT INFORMATION
  Report Type: 
  Country: None (occurrence: None)
  Receive Date: 20080527
  Receipt Date: 20080507
  Transmission Date: 20081010
  Serious: Yes (Death)
  Sender: FDA-Public Use
  Company Number: 2008AL003849

PATIENT
  Age: 70 Year
  Sex: Male
  Weight: 83.0083 kg

DRUGS (10)
  1. DIGOXIN [Suspect]
     Indication: CHRONIC OBSTRUCTIVE PULMONARY DISEASE
     Dosage: 0.125MG DAILY PO
     Route: 048
     Dates: end: 20080411
  2. DIGOXIN [Suspect]
     Indication: LUNG DISORDER
     Dosage: 0.125MG DAILY PO
     Route: 048
     Dates: end: 20080411
  3. DILTIAZEM [Concomitant]
  4. COUMADIN [Concomitant]
  5. LASIX [Concomitant]
  6. POTASSIUM CHLORIDE [Concomitant]
  7. ADVAIR DISKUS 100/50 [Concomitant]
  8. XOPENEX [Concomitant]
  9. LIPITOR [Concomitant]
  10. CELEXA [Concomitant]

REACTIONS (2)
  - FATIGUE [None]
  - MALAISE [None]
